FAERS Safety Report 21724054 (Version 1)
Quarter: 2022Q4

REPORT INFORMATION
  Report Type: Spontaneous
  Country: US (occurrence: US)
  Receive Date: 20221213
  Receipt Date: 20221213
  Transmission Date: 20230113
  Serious: No
  Sender: FDA-Public Use
  Company Number: US-AMGEN-USASP2022212517

PATIENT
  Age: 28 Year
  Sex: Female

DRUGS (8)
  1. OTEZLA [Suspect]
     Active Substance: APREMILAST
     Indication: Psoriatic arthropathy
     Dosage: 30 MILLIGRAM, QD
     Route: 048
  2. OTEZLA [Suspect]
     Active Substance: APREMILAST
     Indication: Migraine with aura
  3. AMITRIPTYLINE HCL CF [Concomitant]
  4. VYVANSE [Concomitant]
     Active Substance: LISDEXAMFETAMINE DIMESYLATE
  5. PROPRANOLOL HYDROCHLORIDE TSURUHARA [Concomitant]
     Dosage: 40 MILLIGRAM
  6. QULIPTA [Concomitant]
     Active Substance: ATOGEPANT
  7. CLONAZEPAM [Concomitant]
     Active Substance: CLONAZEPAM
  8. SINGULAIR [Concomitant]
     Active Substance: MONTELUKAST SODIUM

REACTIONS (3)
  - Off label use [Unknown]
  - Product administration interrupted [Unknown]
  - Hypersomnia [Unknown]
